FAERS Safety Report 8112004-6 (Version None)
Quarter: 2011Q4

REPORT INFORMATION
  Report Type: 
  Country: None (occurrence: None)
  Receive Date: 20111223
  Receipt Date: 20110815
  Transmission Date: 20120403
  Serious: Yes (Other)
  Sender: FDA-Public Use
  Company Number: PHEH2011US01790

PATIENT
  Age: 72 Year
  Sex: Female

DRUGS (3)
  1. LETROZOLE [Suspect]
  2. FEMARA [Suspect]
     Dosage: 2.5 MG, QD
  3. ZOMETA [Concomitant]

REACTIONS (4)
  - DRUG INEFFECTIVE [None]
  - METASTASES TO BONE [None]
  - BREAST CANCER RECURRENT [None]
  - MALAISE [None]
